FAERS Safety Report 9026575 (Version 1)
Quarter: 2012Q4

REPORT INFORMATION
  Report Type: Spontaneous
  Country: US (occurrence: None)
  Receive Date: 20121214
  Receipt Date: 20121214
  Transmission Date: 20130627
  Serious: Yes (Death, Life-Threatening)
  Sender: FDA-Public Use
  Company Number: None

PATIENT
  Age: 8 Month
  Sex: Female
  Weight: 9 kg

DRUGS (1)
  1. HYLANDS BABY TEETHING TABLETS [Suspect]
     Indication: TEETHING

REACTIONS (1)
  - Product quality issue [None]
